FAERS Safety Report 17334049 (Version 4)
Quarter: 2020Q3

REPORT INFORMATION
  Report Type: Spontaneous
  Country: US (occurrence: US)
  Receive Date: 20200128
  Receipt Date: 20200922
  Transmission Date: 20201102
  Serious: No
  Sender: FDA-Public Use
  Company Number: US-PFIZER INC-2020038091

PATIENT
  Age: 71 Year
  Sex: Female

DRUGS (3)
  1. IBRANCE [Suspect]
     Active Substance: PALBOCICLIB
     Indication: BREAST CANCER FEMALE
     Dosage: 125 MG, CYCLIC(125MG DAILY DAY 1?21 OF 28 DAY CYCLE)
     Route: 048
     Dates: start: 2019
  2. IBRANCE [Suspect]
     Active Substance: PALBOCICLIB
     Dosage: 125 MG, CYCLIC(TAKE 1 CAPSULE BY MOUTH ONCE A DAY FOR 21 DAYS ON, 7 DAYS OFF)
     Route: 048
     Dates: start: 20200124
  3. LETROZOLE. [Concomitant]
     Active Substance: LETROZOLE
     Dosage: UNK UNK, DAILY

REACTIONS (2)
  - Alopecia [Unknown]
  - Anxiety [Not Recovered/Not Resolved]

NARRATIVE: CASE EVENT DATE: 20200124
